FAERS Safety Report 4669520-9 (Version None)
Quarter: 2005Q2

REPORT INFORMATION
  Report Type: 
  Country: None (occurrence: None)
  Receive Date: 20050523
  Receipt Date: 20050511
  Transmission Date: 20051028
  Serious: Yes (Hospitalization)
  Sender: FDA-Public Use
  Company Number: PHRM2005FR01515

PATIENT
  Age: 84 Year
  Sex: Female

DRUGS (4)
  1. COTAREG [Suspect]
     Indication: HYPERTENSION
     Dosage: 1 DF, QD
     Route: 048
  2. TAMOXIFEN [Concomitant]
  3. LEVOTHYROX [Concomitant]
  4. ENDOTELON [Concomitant]

REACTIONS (5)
  - CONFUSIONAL STATE [None]
  - MALAISE [None]
  - POLYURIA [None]
  - PYREXIA [None]
  - URINARY TRACT INFECTION [None]
